FAERS Safety Report 10223070 (Version 1)
Quarter: 2014Q2

REPORT INFORMATION
  Report Type: Spontaneous
  Country: US (occurrence: None)
  Receive Date: 20140605
  Receipt Date: 20140605
  Transmission Date: 20141212
  Serious: Yes (Hospitalization)
  Sender: FDA-Public Use
  Company Number: UNT-2014-000205

PATIENT
  Age: 11 Year
  Sex: Female

DRUGS (1)
  1. REMODULIN [Suspect]
     Indication: COR PULMONALE CHRONIC
     Route: 042
     Dates: start: 20140127

REACTIONS (3)
  - Pulmonary arterial hypertension [None]
  - Chest pain [None]
  - Incorrect dose administered [None]
